FAERS Safety Report 7460259-3 (Version None)
Quarter: 2011Q2

REPORT INFORMATION
  Report Type: 
  Country: None (occurrence: None)
  Receive Date: 20110505
  Receipt Date: 20110421
  Transmission Date: 20111010
  Serious: Yes (Life-Threatening, Hospitalization)
  Sender: FDA-Public Use
  Company Number: US-BAYER-2011-014061

PATIENT
  Age: 17 Year
  Sex: Female
  Weight: 65.8 kg

DRUGS (5)
  1. YASMIN [Suspect]
     Dosage: UNK
  2. YASMIN [Suspect]
     Indication: CONTRACEPTION
     Dosage: UNK UNK, QD
     Route: 048
     Dates: start: 20070101, end: 20080101
  3. YAZ [Suspect]
     Dosage: UNK, QD
     Dates: start: 20090801, end: 20090901
  4. YAZ [Suspect]
     Indication: CONTRACEPTION
     Dosage: UNK
     Route: 048
     Dates: start: 20070601, end: 20080101
  5. YASMIN [Suspect]
     Dosage: UNK, QD
     Dates: start: 20090801, end: 20090901

REACTIONS (3)
  - PAIN [None]
  - BILIARY COLIC [None]
  - ABDOMINAL PAIN [None]
